FAERS Safety Report 6326080-4 (Version None)
Quarter: 2009Q3

REPORT INFORMATION
  Report Type: 
  Country: None (occurrence: None)
  Receive Date: 20090824
  Receipt Date: 20090817
  Transmission Date: 20100115
  Serious: Yes (Other)
  Sender: FDA-Public Use
  Company Number: CH-B.I. PHARMACEUTICALS,INC./RIDGEFIELD-2009-SI-00034SI

PATIENT
  Sex: Female
  Weight: 78 kg

DRUGS (3)
  1. MICARDIS [Suspect]
     Indication: HYPERTENSION
     Route: 048
     Dates: start: 20090730, end: 20090805
  2. PONSTAN [Concomitant]
     Dosage: 1000 MG
     Route: 048
  3. METFORMIN HCL [Concomitant]
     Route: 048

REACTIONS (2)
  - BRONCHOPNEUMONIA [None]
  - OEDEMA PERIPHERAL [None]
